FAERS Safety Report 15693647 (Version 1)
Quarter: 2018Q4

REPORT INFORMATION
  Report Type: Other
  Country: ES (occurrence: ES)
  Receive Date: 20181206
  Receipt Date: 20181206
  Transmission Date: 20190205
  Serious: Yes (Hospitalization, Other)
  Sender: FDA-Public Use
  Company Number: ES-APOTEX-2018AP026080

PATIENT
  Age: 64 Year
  Sex: Male

DRUGS (4)
  1. TAMIFLU [Suspect]
     Active Substance: OSELTAMIVIR PHOSPHATE
     Indication: H1N1 INFLUENZA
     Dosage: 150 MG, BID
     Route: 048
     Dates: start: 20180123, end: 20180127
  2. OMEPRAZOLE. [Suspect]
     Active Substance: OMEPRAZOLE
     Indication: PROPHYLAXIS AGAINST GASTROINTESTINAL ULCER
     Dosage: 40 MG, QD
     Route: 042
     Dates: start: 20180122, end: 20180201
  3. BENCILPENICILINA SODICA [Suspect]
     Active Substance: PENICILLIN G SODIUM
     Indication: PNEUMONIA STREPTOCOCCAL
     Dosage: 1 G, Q.4H.
     Route: 042
     Dates: start: 20180122, end: 20180201
  4. CLINDAMICINA FOSFATO [Suspect]
     Active Substance: CLINDAMYCIN PHOSPHATE
     Indication: PNEUMONIA STREPTOCOCCAL
     Dosage: 600 MG, Q.6H
     Route: 042
     Dates: start: 20180124, end: 20180124

REACTIONS (1)
  - Toxic skin eruption [Recovered/Resolved]

NARRATIVE: CASE EVENT DATE: 20180126
